FAERS Safety Report 5223810-X (Version None)
Quarter: 2007Q1

REPORT INFORMATION
  Report Type: 
  Country: None (occurrence: None)
  Receive Date: 20070130
  Receipt Date: 20070118
  Transmission Date: 20070707
  Serious: Yes (Other)
  Sender: FDA-Public Use
  Company Number: PHBS2007BE01144

PATIENT
  Age: 61 Year
  Sex: Female
  Weight: 71 kg

DRUGS (10)
  1. ZOMETA [Suspect]
     Indication: METASTASES TO BONE
     Dosage: 4 MG, MONTHLY
     Route: 042
     Dates: start: 20001212, end: 20060822
  2. VOLTAREN [Concomitant]
     Route: 065
  3. VALIUM [Concomitant]
     Route: 065
  4. INDOCID RETARD [Concomitant]
     Route: 065
  5. EPISAM [Concomitant]
     Route: 065
  6. MAGNESIUM [Concomitant]
     Route: 065
  7. VITAMIN B COMPLEX CAP [Concomitant]
     Route: 065
  8. MEDIAVEN [Concomitant]
     Route: 066
  9. MS CONTIN [Concomitant]
     Route: 065
  10. MS DIRECT [Concomitant]
     Route: 065

REACTIONS (2)
  - OSTEONECROSIS [None]
  - TOOTH EXTRACTION [None]
